FAERS Safety Report 7952854-X (Version None)
Quarter: 2011Q4

REPORT INFORMATION
  Report Type: 
  Country: None (occurrence: None)
  Receive Date: 20111129
  Receipt Date: 20111113
  Transmission Date: 20120403
  Serious: Yes (Other)
  Sender: FDA-Public Use
  Company Number: GB-DEXPHARM-20111550

PATIENT
  Age: 35 Year
  Sex: Male

DRUGS (2)
  1. OMEPRAZOLE [Suspect]
     Dosage: 20 MG MILLIGRAM(S) ORAL
     Route: 048
  2. OMEPRAZOLE [Suspect]
     Dosage: SEP. DOSAGES/INTERVAL: 1 IN 1 DAY ORAL
     Route: 048

REACTIONS (2)
  - OEDEMA PERIPHERAL [None]
  - HYPERSENSITIVITY [None]
